FAERS Safety Report 9998069 (Version 1)
Quarter: 2014Q1

REPORT INFORMATION
  Report Type: Spontaneous
  Country: TR (occurrence: TR)
  Receive Date: 20140311
  Receipt Date: 20140311
  Transmission Date: 20141002
  Serious: Yes (Death, Hospitalization, Other)
  Sender: FDA-Public Use
  Company Number: PHHY2014TR029106

PATIENT
  Age: 29 Year
  Sex: Female

DRUGS (5)
  1. CARBAMAZEPINE [Suspect]
     Indication: EPILEPSY
  2. PHENOBARBITAL [Suspect]
     Indication: EPILEPSY
  3. LEVETIRACETAM [Suspect]
     Indication: EPILEPSY
     Dosage: UNK
  4. VALPROIC ACID [Concomitant]
     Dosage: UNK
  5. LAMOTRIGINE [Concomitant]
     Dosage: UNK

REACTIONS (32)
  - Multi-organ failure [Fatal]
  - Nicotinic acid deficiency [Unknown]
  - Coma [Unknown]
  - Confusional state [Unknown]
  - Disorientation [Unknown]
  - Drug eruption [Unknown]
  - Mental impairment [Unknown]
  - Skin discolouration [Unknown]
  - Frequent bowel movements [Unknown]
  - Cheilitis [Unknown]
  - Leukaemic infiltration [Unknown]
  - Epidermal necrosis [Unknown]
  - Dermatitis [Unknown]
  - Anal erosion [Unknown]
  - Encephalopathy [Unknown]
  - Cognitive disorder [Unknown]
  - Decreased appetite [Unknown]
  - Epigastric discomfort [Unknown]
  - Gastritis [Unknown]
  - Nausea [Unknown]
  - Vomiting [Unknown]
  - Diarrhoea [Unknown]
  - Apathy [Unknown]
  - Irritability [Unknown]
  - Headache [Unknown]
  - Hallucination [Unknown]
  - Ataxia [Unknown]
  - Paresis [Unknown]
  - Neuropathy peripheral [Unknown]
  - Myelitis [Unknown]
  - Scab [Unknown]
  - Epilepsy [Unknown]
